FAERS Safety Report 4274884-4 (Version None)
Quarter: 2004Q1

REPORT INFORMATION
  Report Type: 
  Country: None (occurrence: None)
  Receive Date: 20040116
  Receipt Date: 20040113
  Transmission Date: 20041129
  Serious: Yes (Hospitalization)
  Sender: FDA-Public Use
  Company Number: MK200312-0152-2

PATIENT
  Age: 48 Year
  Sex: Male

DRUGS (3)
  1. ANAFRANIL [Suspect]
  2. OLANZAPINE [Suspect]
  3. LITHIUM CARBONATE [Concomitant]

REACTIONS (9)
  - BLOOD PRESSURE INCREASED [None]
  - DIABETIC HYPEROSMOLAR COMA [None]
  - HALLUCINATION, VISUAL [None]
  - METABOLIC ACIDOSIS [None]
  - PARAESTHESIA [None]
  - PNEUMONIA [None]
  - RENAL FAILURE [None]
  - RHABDOMYOLYSIS [None]
  - VISION BLURRED [None]
